FAERS Safety Report 10408664 (Version 1)
Quarter: 2014Q3

REPORT INFORMATION
  Report Type: Spontaneous
  Country: FR (occurrence: FR)
  Receive Date: 20140826
  Receipt Date: 20140826
  Transmission Date: 20150326
  Serious: Yes (Life-Threatening)
  Sender: FDA-Public Use
  Company Number: FR-ROCHE-1453653

PATIENT
  Age: 30 Year
  Sex: Male

DRUGS (14)
  1. TRIFLUCAN [Interacting]
     Active Substance: FLUCONAZOLE
     Indication: PROPHYLAXIS
     Route: 048
     Dates: start: 20110330, end: 20110530
  2. ROVALCYTE [Concomitant]
     Active Substance: VALGANCICLOVIR HYDROCHLORIDE
  3. NEORECORMON [Concomitant]
     Active Substance: ERYTHROPOIETIN
  4. PROGRAF [Interacting]
     Active Substance: TACROLIMUS\TACROLIMUS ANHYDROUS
     Indication: RENAL TRANSPLANT
  5. SPECIAFOLDINE [Concomitant]
     Active Substance: FOLIC ACID
  6. KARDEGIC [Concomitant]
     Active Substance: ASPIRIN LYSINE
  7. CELLCEPT [Suspect]
     Active Substance: MYCOPHENOLATE MOFETIL\MYCOPHENOLATE MOFETIL HYDROCHLORIDE
     Indication: PANCREAS TRANSPLANT
     Route: 048
     Dates: start: 20110330
  8. CORTANCYL [Interacting]
     Active Substance: PREDNISONE
     Indication: PRODUCT USED FOR UNKNOWN INDICATION
     Route: 048
     Dates: start: 20110330
  9. MOPRAL [Concomitant]
     Active Substance: OMEPRAZOLE SODIUM
  10. 1-ALPHA [Concomitant]
     Active Substance: ALFACALCIDOL
  11. FUNGIZONE [Concomitant]
     Active Substance: AMPHOTERICIN B
  12. CELLCEPT [Interacting]
     Active Substance: MYCOPHENOLATE MOFETIL\MYCOPHENOLATE MOFETIL HYDROCHLORIDE
     Indication: RENAL TRANSPLANT
  13. PROGRAF [Interacting]
     Active Substance: TACROLIMUS\TACROLIMUS ANHYDROUS
     Indication: PANCREAS TRANSPLANT
     Route: 048
     Dates: start: 20110330
  14. PENTACARINAT [Concomitant]
     Active Substance: PENTAMIDINE ISETHIONATE

REACTIONS (6)
  - Drug interaction [Unknown]
  - Peritoneal haemorrhage [Recovered/Resolved with Sequelae]
  - Mycotic aneurysm [Recovered/Resolved with Sequelae]
  - Disseminated intravascular coagulation [Recovered/Resolved]
  - Candida infection [Recovered/Resolved with Sequelae]
  - Graft loss [Recovered/Resolved with Sequelae]

NARRATIVE: CASE EVENT DATE: 20110530
